FAERS Safety Report 26067003 (Version 1)
Quarter: 2025Q4

REPORT INFORMATION
  Report Type: Report from Study
  Country: BR (occurrence: None)
  Receive Date: 20251119
  Receipt Date: 20251119
  Transmission Date: 20260117
  Serious: Yes (Hospitalization, Other)
  Sender: UCB
  Company Number: BR-UCBSA-2025072216

PATIENT
  Weight: 90 kg

DRUGS (1)
  1. CERTOLIZUMAB PEGOL [Suspect]
     Active Substance: CERTOLIZUMAB PEGOL
     Indication: Rheumatoid arthritis
     Dosage: UNK

REACTIONS (8)
  - Intracranial aneurysm [Unknown]
  - Surgery [Unknown]
  - Rheumatoid arthritis [Not Recovered/Not Resolved]
  - Diabetes mellitus [Unknown]
  - Anaphylactic shock [Unknown]
  - COVID-19 [Recovered/Resolved]
  - Weight increased [Unknown]
  - Weight decreased [Unknown]
